FAERS Safety Report 4952350-8 (Version None)
Quarter: 2006Q1

REPORT INFORMATION
  Report Type: 
  Country: None (occurrence: None)
  Receive Date: 20060323
  Receipt Date: 20060322
  Transmission Date: 20060701
  Serious: Yes (Hospitalization)
  Sender: FDA-Public Use
  Company Number: AU-BOEHRINGER INGELHEIM PHARMACEUTICALS, INC.-2006-BP-03193AU

PATIENT
  Age: 74 Year
  Sex: Female
  Weight: 100 kg

DRUGS (7)
  1. SPIRIVA [Suspect]
     Indication: ASTHMA
     Route: 055
     Dates: start: 20040602, end: 20040610
  2. VIOXX [Suspect]
     Route: 048
  3. LOVAN [Concomitant]
  4. PHYSEPTONE [Concomitant]
  5. VASOCARDOL [Concomitant]
  6. ACIMAX [Concomitant]
  7. OXYCONTIN [Concomitant]

REACTIONS (1)
  - VISUAL DISTURBANCE [None]
